FAERS Safety Report 14611767 (Version 3)
Quarter: 2019Q1

REPORT INFORMATION
  Report Type: Spontaneous
  Country: US (occurrence: US)
  Receive Date: 20180308
  Receipt Date: 20190110
  Transmission Date: 20190417
  Serious: No
  Sender: FDA-Public Use
  Company Number: US-PFIZER INC-2018094518

PATIENT
  Age: 62 Year
  Sex: Male
  Weight: 112 kg

DRUGS (1)
  1. DILANTIN [Suspect]
     Active Substance: PHENYTOIN
     Dosage: UNK
     Route: 048

REACTIONS (3)
  - Psychomotor hyperactivity [Unknown]
  - Agitation [Unknown]
  - Drug hypersensitivity [Unknown]
